FAERS Safety Report 9515446 (Version 1)
Quarter: 2013Q1

REPORT INFORMATION
  Report Type: Spontaneous
  Country: US (occurrence: None)
  Receive Date: 20130305
  Receipt Date: 20130305
  Transmission Date: 20140127
  Serious: Yes (Other)
  Sender: FDA-Public Use
  Company Number: 163-21880-12112581

PATIENT
  Age: 81 Year
  Sex: Female
  Weight: 65.32 kg

DRUGS (8)
  1. REVLIMID [Suspect]
     Indication: PLASMA CELL MYELOMA
     Dosage: 25 MG, 1 IN 1 D, PO
     Route: 048
     Dates: start: 20101115, end: 2010
  2. ASPIRIN (ACETYLSALICYLIC ACID) (ENTERIC-COATED TABLET) [Concomitant]
  3. CALCIUM + VITAMIN D (LEKOVIT CA) (UNKNOWN) [Concomitant]
  4. CLONAZEPAM (CLONAZEPAM) (UNKNOWN) [Concomitant]
  5. DEXAMETHASONE (DEXAMEHTASONE) (UNKNOWN) [Concomitant]
  6. HYDROCHLOROTHIAZIDE (HYDROCHLOROTHIAZIDE) (UNKNOWN) [Concomitant]
  7. POTASSIUM GLUCONATE (POTASSIUM GLUCONATE) (UNKNOWN) [Concomitant]
  8. VITAMIN D (ERGOCALCIFEROL) (UNKNOWN) [Concomitant]

REACTIONS (1)
  - Muscle spasms [None]
